FAERS Safety Report 8833846 (Version 1)
Quarter: 2012Q4

REPORT INFORMATION
  Report Type: 
  Country: GB (occurrence: GB)
  Receive Date: 20121011
  Receipt Date: 20121011
  Transmission Date: 20130627
  Serious: Yes (Death, Other)
  Sender: FDA-Public Use
  Company Number: GB-RANBAXY-2012R1-60701

PATIENT
  Age: 72 Year
  Sex: Male
  Weight: 91 kg

DRUGS (10)
  1. ATORVASTATIN [Suspect]
     Indication: MYOCARDIAL ISCHAEMIA
     Dosage: UNK
     Route: 048
     Dates: start: 20080311
  2. CLARITHROMYCIN [Suspect]
     Indication: OSTEOMYELITIS
     Dosage: 250 mg, bid
     Route: 065
     Dates: start: 20120731, end: 20120806
  3. FUSIDIC ACID [Suspect]
     Indication: OSTEOMYELITIS
     Dosage: 250 mg, bid
     Route: 065
     Dates: start: 20120731, end: 20120806
  4. AMIODARONE [Concomitant]
     Indication: ARRHYTHMIA
     Dosage: UNK
     Route: 048
     Dates: start: 20101003
  5. ASPIRIN [Concomitant]
     Indication: MYOCARDIAL ISCHAEMIA
     Dosage: UNK
     Route: 048
     Dates: start: 2005
  6. BISOPROLOL [Concomitant]
     Indication: MYOCARDIAL ISCHAEMIA
     Dosage: UNK
     Route: 048
     Dates: start: 2007
  7. FUROSEMIDE [Concomitant]
     Indication: CARDIAC FAILURE CONGESTIVE
     Dosage: UNK
     Route: 048
     Dates: start: 2008
  8. METFORMIN [Concomitant]
     Indication: DIABETES MELLITUS
     Dosage: 500 mg, tid
     Route: 048
     Dates: start: 2005
  9. PERINDOPRIL [Concomitant]
     Indication: MYOCARDIAL ISCHAEMIA
     Dosage: UNK
     Route: 048
     Dates: start: 2005
  10. THYROXINE [Concomitant]
     Indication: HYPOTHYROIDISM
     Dosage: UNK
     Route: 048
     Dates: start: 20111212

REACTIONS (4)
  - Death [Fatal]
  - Diarrhoea [Not Recovered/Not Resolved]
  - Syncope [Not Recovered/Not Resolved]
  - Vomiting [Not Recovered/Not Resolved]
